FAERS Safety Report 14481461 (Version 3)
Quarter: 2019Q4

REPORT INFORMATION
  Report Type: Spontaneous
  Country: US (occurrence: US)
  Receive Date: 20180202
  Receipt Date: 20191115
  Transmission Date: 20200122
  Serious: Yes (Hospitalization)
  Sender: FDA-Public Use
  Company Number: US-SA-2018SA024920

PATIENT
  Age: 81 Year
  Sex: Female

DRUGS (2)
  1. LANTUS SOLOSTAR [Suspect]
     Active Substance: INSULIN GLARGINE
     Dosage: 34 IU, TWICE A DAY
     Route: 065
  2. LANTUS SOLOSTAR [Suspect]
     Active Substance: INSULIN GLARGINE
     Indication: TYPE 2 DIABETES MELLITUS
     Dosage: 36 DF,QD
     Route: 051
     Dates: start: 201707

REACTIONS (11)
  - Urinary tract infection [Unknown]
  - Product use issue [Unknown]
  - Chronic obstructive pulmonary disease [Unknown]
  - Injection site haemorrhage [Unknown]
  - Inappropriate schedule of product administration [Unknown]
  - Injection site swelling [Unknown]
  - Device issue [Unknown]
  - Amnesia [Unknown]
  - Injection site pain [Unknown]
  - Vertigo [Unknown]
  - Speech disorder [Unknown]
